FAERS Safety Report 6023262-6 (Version None)
Quarter: 2008Q4

REPORT INFORMATION
  Report Type: 
  Country: None (occurrence: None)
  Receive Date: 20081224
  Receipt Date: 20081224
  Transmission Date: 20090506
  Serious: Yes (Other)
  Sender: FDA-Public Use
  Company Number: None

PATIENT
  Age: 26 Year
  Sex: Female
  Weight: 72.5755 kg

DRUGS (2)
  1. CLARITHROMYCIN EXTENDED RELEASE [Suspect]
     Indication: EAR INFECTION
     Dosage: 1000 MG 1 DOSE PER DAY PO
     Route: 048
     Dates: start: 20081222, end: 20081223
  2. CLARITHROMYCIN EXTENDED RELEASE [Suspect]

REACTIONS (3)
  - ABDOMINAL PAIN UPPER [None]
  - DIZZINESS [None]
  - MIGRAINE [None]
